FAERS Safety Report 22992872 (Version 2)
Quarter: 2025Q2

REPORT INFORMATION
  Report Type: Spontaneous
  Country: ES (occurrence: ES)
  Receive Date: 20230927
  Receipt Date: 20250521
  Transmission Date: 20250717
  Serious: Yes (Hospitalization, Other)
  Sender: AUROBINDO
  Company Number: ES-SUN PHARMACEUTICAL INDUSTRIES LTD-2023R1-408466

PATIENT
  Age: 79 Year

DRUGS (10)
  1. PIPERACILLIN AND TAZOBACTAM [Suspect]
     Active Substance: PIPERACILLIN SODIUM\TAZOBACTAM SODIUM
     Indication: Thrombocytopenia
     Route: 065
  2. PIPERACILLIN AND TAZOBACTAM [Suspect]
     Active Substance: PIPERACILLIN SODIUM\TAZOBACTAM SODIUM
     Indication: Pancreatitis
  3. LINEZOLID [Suspect]
     Active Substance: LINEZOLID
     Indication: Thrombocytopenia
     Route: 065
  4. LINEZOLID [Suspect]
     Active Substance: LINEZOLID
     Indication: Pancreatitis
  5. DAPTOMYCIN [Concomitant]
     Active Substance: DAPTOMYCIN
     Indication: Product used for unknown indication
     Dosage: 10 MILLIGRAM/KILOGRAM, ONCE A DAY
     Route: 065
  6. DAPTOMYCIN [Concomitant]
     Active Substance: DAPTOMYCIN
     Route: 065
  7. CLOXACILLIN [Concomitant]
     Active Substance: CLOXACILLIN
     Indication: Product used for unknown indication
     Route: 065
  8. CEFTAROLINE [Concomitant]
     Active Substance: CEFTAROLINE
     Indication: Product used for unknown indication
     Dosage: 600 MILLIGRAM, 3 TIMES A DAY
     Route: 065
  9. CEFTAROLINE [Concomitant]
     Active Substance: CEFTAROLINE
     Dosage: 400 MILLIGRAM, 3 TIMES A DAY
     Route: 065
  10. CEFTAROLINE [Concomitant]
     Active Substance: CEFTAROLINE
     Dosage: 300 MILLIGRAM, 3 TIMES A DAY
     Route: 065

REACTIONS (5)
  - Endocarditis [Unknown]
  - Acute kidney injury [Unknown]
  - Bacteraemia [Unknown]
  - Cardiac failure [Unknown]
  - Sepsis [Unknown]
